FAERS Safety Report 4440234-3 (Version None)
Quarter: 2004Q3

REPORT INFORMATION
  Report Type: 
  Country: None (occurrence: None)
  Receive Date: 20040831
  Receipt Date: 20040831
  Transmission Date: 20050211
  Serious: Yes (Other)
  Sender: FDA-Public Use
  Company Number: None

PATIENT
  Age: 18 Year
  Sex: Male
  Weight: 64.4 kg

DRUGS (16)
  1. NITAZOXANIDE SUSPENSION ROMARK [Suspect]
     Indication: GASTROENTERITIS CRYPTOSPORIDIAL
     Dosage: 100 MG BID ORAL
     Route: 048
     Dates: start: 20040817, end: 20040828
  2. NITAZOXANIDE SUSPENSION ROMARK [Suspect]
  3. ZOLPIDEM TARTRATE [Concomitant]
  4. ONDANSETRON [Concomitant]
  5. MORPHINE [Concomitant]
  6. PAROMOMYCIN [Concomitant]
  7. PAREGORIC [Concomitant]
  8. TACROLIUMUS [Concomitant]
  9. URSODILOL [Concomitant]
  10. LACTOBACILLUS [Concomitant]
  11. LORAZEPAM [Concomitant]
  12. PROMETHAZINE [Concomitant]
  13. ACETAMINOPHEN [Concomitant]
  14. DIPHENHYDRAMINE HCL [Concomitant]
  15. TPN [Concomitant]
  16. FAT EMULSION [Concomitant]

REACTIONS (1)
  - BLOOD BILIRUBIN INCREASED [None]
